FAERS Safety Report 24163713 (Version 3)
Quarter: 2025Q4

REPORT INFORMATION
  Report Type: Report from Study
  Country: AU (occurrence: AU)
  Receive Date: 20240801
  Receipt Date: 20251001
  Transmission Date: 20260118
  Serious: Yes (Other)
  Sender: SANOFI AVENTIS
  Company Number: AU-SA-2024SA221379

PATIENT
  Age: 64 Year
  Sex: Male

DRUGS (3)
  1. DUPILUMAB [Suspect]
     Active Substance: DUPILUMAB
     Indication: Asthma
     Dosage: UNK
  2. CORTICOSTEROID NOS [Concomitant]
     Active Substance: CORTICOSTEROID NOS
     Indication: Asthma
     Dosage: MAINTENANCE
     Route: 048
  3. MEPOLIZUMAB [Concomitant]
     Active Substance: MEPOLIZUMAB
     Indication: Asthma
     Dosage: UNK

REACTIONS (6)
  - Eosinophilic granulomatosis with polyangiitis [Unknown]
  - Endocardial fibrosis [Unknown]
  - Cardiac ventricular thrombosis [Unknown]
  - Left ventricular failure [Unknown]
  - Dyspnoea [Unknown]
  - Eosinophilia [Unknown]
